APPROVED DRUG PRODUCT: NEXTERONE
Active Ingredient: AMIODARONE HYDROCHLORIDE
Strength: 150MG/100ML (1.5MG/ML)
Dosage Form/Route: INJECTABLE;INJECTION
Application: N022325 | Product #002
Applicant: BAXTER HEALTHCARE CORP
Approved: Nov 16, 2010 | RLD: Yes | RS: Yes | Type: RX

PATENTS:
Patent 7635773 | Expires: Mar 13, 2029